FAERS Safety Report 22045665 (Version 1)
Quarter: 2023Q1

REPORT INFORMATION
  Report Type: Other
  Country: MX (occurrence: None)
  Receive Date: 20230228
  Receipt Date: 20230228
  Transmission Date: 20230418
  Serious: No
  Sender: FDA-Public Use
  Company Number: MX-ROCHE-3294355

PATIENT
  Sex: Female

DRUGS (1)
  1. OCREVUS [Suspect]
     Active Substance: OCRELIZUMAB
     Indication: Multiple sclerosis
     Dosage: OCRELIZUMAB VIAL OF 300MG/10ML (30MG/ML)
     Route: 042
     Dates: start: 20220430

REACTIONS (9)
  - Neutrophil count increased [Unknown]
  - Eosinophil count decreased [Unknown]
  - Blood urea nitrogen/creatinine ratio increased [Unknown]
  - Total cholesterol/HDL ratio increased [Unknown]
  - Urine abnormality [Unknown]
  - Specific gravity urine increased [Unknown]
  - Protein urine present [Unknown]
  - Bacterial test positive [Unknown]
  - Urinary sediment present [Unknown]
